FAERS Safety Report 26212734 (Version 1)
Quarter: 2025Q4

REPORT INFORMATION
  Report Type: Spontaneous
  Country: CN (occurrence: CN)
  Receive Date: 20251230
  Receipt Date: 20251230
  Transmission Date: 20260118
  Serious: Yes (Hospitalization, Other)
  Sender: SANDOZ
  Company Number: CN-002147023-NVSC2025CN197509

PATIENT
  Age: 31 Year
  Sex: Male

DRUGS (1)
  1. BRINZOLAMIDE [Suspect]
     Active Substance: BRINZOLAMIDE
     Indication: Glaucoma
     Dosage: 1 %, BID

REACTIONS (13)
  - Leukopenia [Unknown]
  - Thrombocytopenia [Unknown]
  - SJS-TEN overlap [Recovered/Resolved]
  - Hypoalbuminaemia [Unknown]
  - Staphylococcal infection [Unknown]
  - Escherichia infection [Unknown]
  - Candida infection [Unknown]
  - Blister [Recovered/Resolved]
  - Mucosal erosion [Recovered/Resolved]
  - Skin discharge [Recovered/Resolved]
  - Erythema [Recovered/Resolved]
  - Rash erythematous [Recovered/Resolved]
  - Pyrexia [Unknown]
